FAERS Safety Report 21280991 (Version 2)
Quarter: 2022Q3

REPORT INFORMATION
  Report Type: Spontaneous
  Country: BR (occurrence: BR)
  Receive Date: 20220901
  Receipt Date: 20220907
  Transmission Date: 20221026
  Serious: Yes (Death, Other)
  Sender: FDA-Public Use
  Company Number: BR-PFIZER INC-2017549515

PATIENT
  Age: 58 Year
  Sex: Female

DRUGS (2)
  1. SUTENT [Suspect]
     Active Substance: SUNITINIB MALATE
     Dosage: UNK
     Dates: start: 201710
  2. SUTENT [Suspect]
     Active Substance: SUNITINIB MALATE
     Dosage: UNK, CYCLE 2/1 (TAKE 2 WEEKS AND PAUSE 1 WEEK)
     Dates: start: 20171211

REACTIONS (3)
  - Neoplasm progression [Fatal]
  - Swelling face [Recovering/Resolving]
  - Mouth injury [Recovering/Resolving]

NARRATIVE: CASE EVENT DATE: 20171201
